FAERS Safety Report 18996922 (Version 4)
Quarter: 2023Q2

REPORT INFORMATION
  Report Type: Report from Study
  Country: US (occurrence: None)
  Receive Date: 20210311
  Receipt Date: 20230505
  Transmission Date: 20230721
  Serious: Yes (Hospitalization)
  Sender: FDA-Public Use
  Company Number: US-ROCHE-2785824

PATIENT
  Age: 50 Year
  Sex: Female

DRUGS (4)
  1. ATEZOLIZUMAB [Suspect]
     Active Substance: ATEZOLIZUMAB
     Indication: Metastatic carcinoma of the bladder
     Dosage: DATE OF LAST DOSE 15/FEB/2021
     Route: 041
     Dates: start: 20201106
  2. CISPLATIN [Suspect]
     Active Substance: CISPLATIN
     Indication: Metastatic carcinoma of the bladder
     Dosage: DATE OF LAST DOSE 15/FEB/2021
     Route: 065
     Dates: start: 20201106
  3. GEMCITABINE [Suspect]
     Active Substance: GEMCITABINE
     Indication: Metastatic carcinoma of the bladder
     Dosage: DATE OF LAST DOSE 15/FEB/2021
     Route: 065
     Dates: start: 20201106
  4. ELIQUIS [Concomitant]
     Active Substance: APIXABAN

REACTIONS (1)
  - Posterior reversible encephalopathy syndrome [Unknown]

NARRATIVE: CASE EVENT DATE: 20210302
